FAERS Safety Report 19904100 (Version 1)
Quarter: 2021Q4

REPORT INFORMATION
  Report Type: Spontaneous
  Country: FR (occurrence: FR)
  Receive Date: 20211001
  Receipt Date: 20211001
  Transmission Date: 20220303
  Serious: Yes (Other)
  Sender: FDA-Public Use
  Company Number: FR-ALXN-A202110798

PATIENT
  Sex: Female

DRUGS (1)
  1. SOLIRIS [Suspect]
     Active Substance: ECULIZUMAB
     Indication: Paroxysmal nocturnal haemoglobinuria
     Dosage: TREATED WITH MAXIMAL DOSES SINCE A YEAR
     Route: 065

REACTIONS (2)
  - Extravascular haemolysis [Not Recovered/Not Resolved]
  - Anaemia [Unknown]
